FAERS Safety Report 9453596 (Version 1)
Quarter: 2013Q1

REPORT INFORMATION
  Report Type: Not Available
  Country: US (occurrence: US)
  Receive Date: 20120321
  Receipt Date: 20120321
  Transmission Date: 20140127
  Serious: No
  Sender: FDA-Public Use
  Company Number: US-LUNDBECK-DKLU1072803

PATIENT
  Age: 2 None
  Sex: Male

DRUGS (3)
  1. SABRIL (FOR ORAL SOLUTION) [Suspect]
     Indication: INFANTILE SPASMS
     Route: 048
     Dates: start: 20110715
  2. SABRIL (FOR ORAL SOLUTION) [Suspect]
     Route: 048
     Dates: start: 201108
  3. PHENOBARBITAL [Concomitant]
     Indication: PRODUCT USED FOR UNKNOWN INDICATION

REACTIONS (3)
  - Skin discolouration [Unknown]
  - Skin discolouration [Unknown]
  - Lip disorder [Unknown]
